FAERS Safety Report 9540332 (Version 2)
Quarter: 2013Q3

REPORT INFORMATION
  Report Type: Spontaneous
  Country: CA (occurrence: CA)
  Receive Date: 20130920
  Receipt Date: 20130925
  Transmission Date: 20140515
  Serious: Yes (Other)
  Sender: FDA-Public Use
  Company Number: CA-GLAXOSMITHKLINE-A0969878A

PATIENT
  Age: 41 Year
  Sex: Female
  Weight: 64 kg

DRUGS (4)
  1. BENLYSTA [Suspect]
     Indication: SYSTEMIC LUPUS ERYTHEMATOSUS
     Dosage: 660MG SEE DOSAGE TEXT
     Route: 042
     Dates: start: 20120301
  2. PREDNISONE [Concomitant]
     Indication: SYSTEMIC LUPUS ERYTHEMATOSUS
     Dosage: 2MG PER DAY
     Route: 065
  3. CELLCEPT [Concomitant]
     Indication: SYSTEMIC LUPUS ERYTHEMATOSUS
     Dosage: 2G TWICE PER DAY
     Route: 065
  4. PLAQUENIL [Concomitant]
     Indication: SYSTEMIC LUPUS ERYTHEMATOSUS
     Route: 065

REACTIONS (7)
  - Rash [Recovering/Resolving]
  - Pruritus [Recovered/Resolved]
  - Acne [Recovering/Resolving]
  - Dizziness [Not Recovered/Not Resolved]
  - Activities of daily living impaired [Unknown]
  - Weight decreased [Unknown]
  - Tooth infection [Unknown]
